FAERS Safety Report 16276858 (Version 2)
Quarter: 2019Q3

REPORT INFORMATION
  Report Type: Spontaneous
  Country: US (occurrence: US)
  Receive Date: 20190506
  Receipt Date: 20190719
  Transmission Date: 20191004
  Serious: Yes (Other)
  Sender: FDA-Public Use
  Company Number: US-PFIZER INC-2016596858

PATIENT
  Age: 65 Year
  Sex: Female

DRUGS (26)
  1. OMEPRAZOLE. [Concomitant]
     Active Substance: OMEPRAZOLE
     Dosage: UNK
  2. LYRICA [Suspect]
     Active Substance: PREGABALIN
     Indication: PAIN IN EXTREMITY
     Dosage: 150 MG, DAILY 150MG PER NIGHT)
     Dates: start: 201903
  3. DEXILANT [Concomitant]
     Active Substance: DEXLANSOPRAZOLE
     Dosage: 30 MG, DAILY
     Route: 048
  4. ALBUTEROL;IPRATROPIUM [Concomitant]
     Dosage: UNK, (5ML UNIT DOSE VIAL 0.9% STERILE SALINE, NEBULIZE 1 VIAL WITH 3ML)
  5. ALBUTEROL;IPRATROPIUM [Concomitant]
     Dosage: UNK UNK, 4X/DAY, (2.5MG-0.5 MG/3ML INHALATION SOLUTION 3 MILIMITER(S) INHALED 4 TIMES A DAY)
  6. ATORVASTATIN CALCIUM. [Concomitant]
     Active Substance: ATORVASTATIN CALCIUM
     Dosage: UNK UNK, DAILY
     Route: 048
  7. VITAMINS D3 [Concomitant]
     Dosage: UNK
     Route: 048
     Dates: start: 2003
  8. FLAXSEED OIL [LINUM USITATISSIMUM SEED OIL] [Concomitant]
     Active Substance: HERBALS\LINSEED OIL
     Dosage: UNK
  9. LEVOTHYROXINE SODIUM. [Concomitant]
     Active Substance: LEVOTHYROXINE SODIUM
     Dosage: 88 UG, DAILY
     Route: 048
  10. ZOLPIDEM [Concomitant]
     Active Substance: ZOLPIDEM TARTRATE
     Dosage: UNK UNK, 1X/DAY
     Route: 048
     Dates: start: 2003
  11. IPRATROPIUM BROMIDE. [Concomitant]
     Active Substance: IPRATROPIUM BROMIDE
     Dosage: UNK UNK, AS NEEDED
     Route: 045
     Dates: start: 2009
  12. QUETIAPINE. [Concomitant]
     Active Substance: QUETIAPINE
     Dosage: 800 MG, UNK
     Dates: start: 2003
  13. ALBUTEROL;IPRATROPIUM [Concomitant]
     Dosage: UNK, AS NEEDED
     Dates: start: 2009
  14. CALCIUM [Concomitant]
     Active Substance: CALCIUM
  15. LYRICA [Suspect]
     Active Substance: PREGABALIN
     Indication: NECK PAIN
     Dosage: 25 MG, 3X/DAY (TAKE THREE CAPSULES BY MOUTH IN AM AND ONE CAPSULE BY MOUTH PM)
     Route: 048
  16. LYRICA [Suspect]
     Active Substance: PREGABALIN
     Indication: SLEEP DISORDER
  17. RESTASIS [Concomitant]
     Active Substance: CYCLOSPORINE
     Dosage: UNK UNK, 2X/DAY, (1 DROP(S) BOTH EYES EVERY 12 HOURS)
  18. PROLIA [Concomitant]
     Active Substance: DENOSUMAB
     Dosage: UNK,(1 MILIMITER(S) SUBCUTANEOUS EVERY 6 MONTHS)
     Route: 058
     Dates: start: 2003
  19. SKELAXIN [METAXALONE] [Concomitant]
     Indication: PAIN
     Dosage: 800 MG, UNK, (AS NEEDED )
     Route: 048
  20. BACLOFEN. [Concomitant]
     Active Substance: BACLOFEN
     Dosage: UNK
     Dates: start: 2018
  21. LYRICA [Suspect]
     Active Substance: PREGABALIN
     Indication: PAIN IN EXTREMITY
  22. MIRALAX [Concomitant]
     Active Substance: POLYETHYLENE GLYCOL 3350
     Dosage: 17 G, UNK, (17GRAM(S) BY MOUTH NIGHT @ AM)
     Dates: start: 2003
  23. RANITIDINE. [Concomitant]
     Active Substance: RANITIDINE
     Dosage: UNK
  24. VITAMIN B COMPLEX [Concomitant]
     Active Substance: CYANOCOBALAMIN\DEXPANTHENOL\NIACINAMIDE\PYRIDOXINE HYDROCHLORIDE\RIBOFLAVIN 5^-PHOSPHATE SODIUM\THIAMINE HYDROCHLORIDE\VITAMIN B COMPLEX
     Dosage: UNK
  25. LYRICA [Suspect]
     Active Substance: PREGABALIN
     Indication: MUSCULOSKELETAL PAIN
     Dosage: 150 MG, 2X/DAY
     Route: 048
  26. CALCIUM CARBONATE. [Concomitant]
     Active Substance: CALCIUM CARBONATE
     Dosage: UNK
     Route: 048
     Dates: start: 2003

REACTIONS (7)
  - Acute kidney injury [Not Recovered/Not Resolved]
  - Product physical issue [Recovered/Resolved]
  - Pharyngeal disorder [Recovered/Resolved]
  - Nausea [Recovered/Resolved]
  - Dizziness [Recovered/Resolved]
  - Sinus disorder [Recovered/Resolved]
  - Suspected counterfeit product [Unknown]

NARRATIVE: CASE EVENT DATE: 201903
